FAERS Safety Report 10494086 (Version 1)
Quarter: 2014Q4

REPORT INFORMATION
  Report Type: Spontaneous
  Country: FR (occurrence: FR)
  Receive Date: 20141003
  Receipt Date: 20141003
  Transmission Date: 20150528
  Serious: Yes (Life-Threatening, Hospitalization, Disabling, Other)
  Sender: FDA-Public Use
  Company Number: FR-BRISTOL-MYERS SQUIBB COMPANY-21434766

PATIENT
  Age: 60 Year
  Sex: Female
  Weight: 95 kg

DRUGS (16)
  1. MABTHERA [Suspect]
     Active Substance: RITUXIMAB
     Dosage: SINGLE DOSE?750 MG AT D1
     Route: 042
     Dates: start: 20140801
  2. CORDARONE [Concomitant]
     Active Substance: AMIODARONE HYDROCHLORIDE
  3. ETOPOPHOS [Suspect]
     Active Substance: ETOPOSIDE PHOSPHATE
     Dosage: 200 MG DAILY AT D1 AND D2
     Route: 042
     Dates: start: 20140801, end: 20140802
  4. INEXIUM [Concomitant]
     Active Substance: ESOMEPRAZOLE
  5. INNOHEP [Concomitant]
     Active Substance: TINZAPARIN SODIUM
  6. EMEND [Concomitant]
     Active Substance: APREPITANT
  7. PERFALGAN [Concomitant]
     Active Substance: ACETAMINOPHEN
  8. CARBOPLATINE [Suspect]
     Active Substance: CARBOPLATIN
     Dosage: SINGLE DOSE?610 MG AT D2
     Route: 042
     Dates: start: 20140802
  9. PLITICAN [Concomitant]
     Active Substance: ALIZAPRIDE HYDROCHLORIDE
  10. MESNA. [Concomitant]
     Active Substance: MESNA
  11. METHYLPREDNISOLONE. [Concomitant]
     Active Substance: METHYLPREDNISOLONE
  12. BACTRIM [Concomitant]
     Active Substance: SULFAMETHOXAZOLE\TRIMETHOPRIM
  13. ZOPHREN [Concomitant]
     Active Substance: ONDANSETRON
  14. HOLOXAN [Suspect]
     Active Substance: IFOSFAMIDE
     Dosage: SINGLE DOSE?10G AT D2
     Route: 042
     Dates: start: 20140802
  15. POLARAMINE [Concomitant]
     Active Substance: DEXCHLORPHENIRAMINE MALEATE
  16. ZELITREX [Concomitant]
     Active Substance: VALACYCLOVIR HYDROCHLORIDE

REACTIONS (4)
  - Coma [Unknown]
  - Renal failure [Recovered/Resolved with Sequelae]
  - Tumour lysis syndrome [Recovered/Resolved with Sequelae]
  - Seizure [Unknown]

NARRATIVE: CASE EVENT DATE: 20140805
